FAERS Safety Report 7214654-8 (Version None)
Quarter: 2011Q1

REPORT INFORMATION
  Report Type: 
  Country: None (occurrence: None)
  Receive Date: 20110107
  Receipt Date: 20101221
  Transmission Date: 20110831
  Serious: No
  Sender: FDA-Public Use
  Company Number: US-B.I. PHARMACEUTICALS,INC./RIDGEFIELD-2010-BP-15272BP

PATIENT
  Sex: Female

DRUGS (7)
  1. PRADAXA [Suspect]
     Indication: ATRIAL FIBRILLATION
     Dosage: 300 MG
     Route: 048
     Dates: start: 20101201, end: 20101201
  2. POTASSIUM [Concomitant]
     Indication: PROPHYLAXIS
  3. ATENOLOL [Concomitant]
     Indication: HYPERTENSION
  4. LASIX [Concomitant]
     Indication: FLUID RETENTION
  5. LISINOPRIL [Concomitant]
     Indication: HYPERTENSION
  6. CELEBREX [Concomitant]
     Indication: ARTHRITIS
  7. NEURONTIN [Concomitant]
     Indication: NEUROPATHY PERIPHERAL

REACTIONS (2)
  - FLUID RETENTION [None]
  - EPISTAXIS [None]
